FAERS Safety Report 10150300 (Version 1)
Quarter: 2014Q2

REPORT INFORMATION
  Report Type: Spontaneous
  Country: CH (occurrence: CH)
  Receive Date: 20140502
  Receipt Date: 20140502
  Transmission Date: 20141212
  Serious: Yes (Disabling)
  Sender: FDA-Public Use
  Company Number: CH-UCBSA-119276

PATIENT
  Age: 37 Year
  Sex: Female
  Weight: 55 kg

DRUGS (1)
  1. KEPPRA [Suspect]
     Indication: EPILEPSY
     Dosage: DOSE: 2000 MG/ DAY
     Route: 048
     Dates: start: 20120826

REACTIONS (1)
  - Tooth erosion [Not Recovered/Not Resolved]
